FAERS Safety Report 21179898 (Version 1)
Quarter: 2022Q3

REPORT INFORMATION
  Report Type: Spontaneous
  Country: US (occurrence: None)
  Receive Date: 20220805
  Receipt Date: 20220805
  Transmission Date: 20221027
  Serious: No
  Sender: FDA-Public Use
  Company Number: None

PATIENT
  Age: 77 Year
  Sex: Female
  Weight: 65.25 kg

DRUGS (3)
  1. BUTALBITAL, ASPIRIN, AND CAFFEINE [Suspect]
     Active Substance: ASPIRIN\BUTALBITAL\CAFFEINE
     Indication: Migraine
     Dosage: FREQUENCY : AS NEEDED;?
     Route: 048
  2. UBRELVY [Suspect]
     Active Substance: UBROGEPANT
  3. BUTALBITAL [Concomitant]
     Active Substance: BUTALBITAL

REACTIONS (3)
  - Myalgia [None]
  - Tinnitus [None]
  - Tremor [None]

NARRATIVE: CASE EVENT DATE: 20220705
